FAERS Safety Report 9637793 (Version 2)
Quarter: 2013Q4

REPORT INFORMATION
  Report Type: Report from Study
  Country: ES (occurrence: ES)
  Receive Date: 20131022
  Receipt Date: 20131205
  Transmission Date: 20140711
  Serious: Yes (Death, Other)
  Sender: FDA-Public Use
  Company Number: ES-MERCK-1310ESP004507

PATIENT
  Age: 67 Year
  Sex: Male

DRUGS (9)
  1. CANCIDAS [Suspect]
     Indication: PROPHYLAXIS AGAINST TRANSPLANT REJECTION
     Dosage: 50 MG, QD
     Route: 042
     Dates: start: 20080217, end: 20080226
  2. CANCIDAS [Suspect]
     Indication: ANTIFUNGAL PROPHYLAXIS
     Dosage: 50 MG PER DAY THEREAFTER
  3. GANCICLOVIR [Suspect]
     Indication: ANTIFUNGAL PROPHYLAXIS
     Dosage: UNK UNK, QD
     Route: 042
     Dates: start: 20080217, end: 20080226
  4. GANCICLOVIR [Suspect]
     Indication: ANTIVIRAL PROPHYLAXIS
  5. SULFAMETHOXAZOLE (+) TRIMETHOPRIM [Suspect]
     Indication: ANTIFUNGAL PROPHYLAXIS
     Dosage: 800MG/160MG EVERY12H
     Route: 048
     Dates: start: 20080217, end: 20080226
  6. SULFAMETHOXAZOLE (+) TRIMETHOPRIM [Suspect]
     Indication: PROPHYLAXIS AGAINST TRANSPLANT REJECTION
  7. GLOBULIN, IMMUNE [Concomitant]
  8. VALGANCICLOVIR HYDROCHLORIDE [Concomitant]
  9. CELLCEPT [Concomitant]

REACTIONS (2)
  - Pancytopenia [Recovering/Resolving]
  - Candida infection [Fatal]
